FAERS Safety Report 4551412-7 (Version None)
Quarter: 2005Q1

REPORT INFORMATION
  Report Type: 
  Country: None (occurrence: None)
  Receive Date: 20050111
  Receipt Date: 20050111
  Transmission Date: 20050727
  Serious: No
  Sender: FDA-Public Use
  Company Number: None

PATIENT
  Age: 56 Year
  Sex: Male
  Weight: 61.2356 kg

DRUGS (1)
  1. CORDARONE [Suspect]
     Indication: ATRIAL FIBRILLATION
     Dosage: 200 MG /1 PER DAY
     Dates: start: 20020101, end: 20040101

REACTIONS (5)
  - COUGH [None]
  - DYSPNOEA [None]
  - MUSCULAR WEAKNESS [None]
  - VISUAL DISTURBANCE [None]
  - WEIGHT DECREASED [None]
